FAERS Safety Report 5857250-7 (Version None)
Quarter: 2008Q3

REPORT INFORMATION
  Report Type: 
  Country: None (occurrence: None)
  Receive Date: 20080821
  Receipt Date: 20080805
  Transmission Date: 20090109
  Serious: Yes (Life-Threatening, Hospitalization)
  Sender: FDA-Public Use
  Company Number: 2008S1013999

PATIENT
  Age: 39 Year
  Sex: Female

DRUGS (9)
  1. CITALOPRAM HYDROBROMIDE [Suspect]
     Indication: DEPRESSION
     Dosage: 40 MG; DAILY
     Dates: end: 20070713
  2. REBOXETINE (REBOXETINE) [Suspect]
     Indication: DEPRESSION
     Dosage: 4 MG; TWICE A DAY; ORAL
     Route: 048
     Dates: start: 20070802, end: 20070808
  3. CELECOXIB [Concomitant]
  4. CYCLIZINE [Concomitant]
  5. GABAPENTIN [Concomitant]
  6. LOPERAMIDE HCL [Concomitant]
  7. MEBEVERINE [Concomitant]
  8. QUININE [Concomitant]
  9. ZOPICLONE [Concomitant]

REACTIONS (15)
  - BLOOD CREATINE PHOSPHOKINASE INCREASED [None]
  - CONVULSION [None]
  - GLASGOW COMA SCALE ABNORMAL [None]
  - HEADACHE [None]
  - HYPERREFLEXIA [None]
  - HYPERTENSION [None]
  - HYPERTHERMIA [None]
  - MYOCLONUS [None]
  - NAUSEA [None]
  - PAIN [None]
  - PYREXIA [None]
  - RHABDOMYOLYSIS [None]
  - SEROTONIN SYNDROME [None]
  - UNRESPONSIVE TO STIMULI [None]
  - VENTRICULAR TACHYCARDIA [None]
